FAERS Safety Report 13209984 (Version 1)
Quarter: 2017Q1

REPORT INFORMATION
  Report Type: Report from Study
  Country: BR (occurrence: BR)
  Receive Date: 20170210
  Receipt Date: 20170210
  Transmission Date: 20170428
  Serious: Yes (Death)
  Sender: FDA-Public Use
  Company Number: PHHY2017BR021223

PATIENT
  Sex: Male

DRUGS (1)
  1. ACLASTA [Suspect]
     Active Substance: ZOLEDRONIC ACID
     Indication: OSTEOPOROSIS
     Dosage: 5 MG, EVERY OTHER YEAR
     Route: 042
     Dates: start: 20130228

REACTIONS (3)
  - Underweight [Unknown]
  - Inappropriate schedule of drug administration [Unknown]
  - Lung disorder [Fatal]
